FAERS Safety Report 23328507 (Version 6)
Quarter: 2024Q2

REPORT INFORMATION
  Report Type: Spontaneous
  Country: AT (occurrence: AT)
  Receive Date: 20231221
  Receipt Date: 20240404
  Transmission Date: 20240716
  Serious: Yes (Death, Life-Threatening, Hospitalization)
  Sender: FDA-Public Use
  Company Number: AT-ROCHE-1997349

PATIENT
  Age: 68 Year
  Sex: Female

DRUGS (28)
  1. ANASTROZOLE [Suspect]
     Active Substance: ANASTROZOLE
     Indication: Breast cancer metastatic
     Dosage: 1 MG, QD (1X/DAY)
     Route: 048
     Dates: start: 20170410, end: 2017
  2. ARIMIDEX [Suspect]
     Active Substance: ANASTROZOLE
     Indication: Breast cancer metastatic
     Dosage: 1 MG, QD, MOST RECENT DOSE ADMINISTERED: //2017
     Route: 048
     Dates: start: 20170410, end: 2017
  3. ARIMIDEX [Suspect]
     Active Substance: ANASTROZOLE
     Indication: HER2 positive breast cancer
  4. AROMASIN [Suspect]
     Active Substance: EXEMESTANE
     Indication: HER2 positive breast cancer
     Dosage: 25 MG, QD
     Route: 048
     Dates: start: 20170321, end: 20170409
  5. EXEMESTANE [Suspect]
     Active Substance: EXEMESTANE
     Indication: Breast cancer metastatic
     Dosage: MOST RECENT DOSE: 09/APR/2017
     Route: 048
     Dates: start: 20170321
  6. HERCEPTIN [Suspect]
     Active Substance: TRASTUZUMAB
     Indication: HER2 positive breast cancer
     Dosage: 470 MG, Q3W
     Route: 042
     Dates: start: 20161207, end: 20170502
  7. PERJETA [Suspect]
     Active Substance: PERTUZUMAB
     Indication: Breast cancer metastatic
     Dosage: 420 MG, Q3W, MOST RECENT DOSE ADMINISTERED: 02/MAY/2017
     Route: 042
     Dates: start: 20161211, end: 20170502
  8. PERJETA [Suspect]
     Active Substance: PERTUZUMAB
     Indication: HER2 positive breast cancer
  9. PERTUZUMAB [Suspect]
     Active Substance: PERTUZUMAB
     Indication: Breast cancer metastatic
     Dosage: 420 MG, Q3W (EVERY 3 WEEKS
     Route: 040
     Dates: start: 20161107, end: 20170502
  10. TRASTUZUMAB [Suspect]
     Active Substance: TRASTUZUMAB
     Indication: Breast cancer metastatic
     Dosage: 470 MG, Q3W (EVERY 3 WEEKS)
     Route: 042
     Dates: start: 20161107, end: 20170502
  11. ALPRAZOLAM [Concomitant]
     Active Substance: ALPRAZOLAM
     Indication: Product used for unknown indication
     Dosage: UNK
     Route: 065
     Dates: start: 20170615, end: 20170704
  12. CISPLATIN [Concomitant]
     Active Substance: CISPLATIN
     Indication: Product used for unknown indication
     Route: 065
  13. CISPLATIN [Concomitant]
     Active Substance: CISPLATIN
     Indication: Product used for unknown indication
     Route: 065
  14. DOXORUBICIN [Concomitant]
     Active Substance: DOXORUBICIN
     Indication: Product used for unknown indication
     Route: 065
  15. DOXORUBICIN [Concomitant]
     Active Substance: DOXORUBICIN
     Indication: Product used for unknown indication
     Route: 065
  16. ESOMEPRAZOLE [Concomitant]
     Active Substance: ESOMEPRAZOLE
     Indication: Product used for unknown indication
     Dosage: UNK, ONGOING = NOT CHECKED
     Route: 065
     Dates: start: 20170615, end: 20170704
  17. HYDROMORPHONE HYDROCHLORIDE [Concomitant]
     Active Substance: HYDROMORPHONE HYDROCHLORIDE
     Indication: Product used for unknown indication
     Dosage: UNK, 2.00 MG (MILLIGRAM) CAPSULE PO (ORAL) BID (TWICE A DAY)
     Route: 065
     Dates: start: 20170516, end: 20170704
  18. LASIX [Concomitant]
     Active Substance: FUROSEMIDE
     Indication: Product used for unknown indication
     Dosage: UNK
     Route: 065
     Dates: start: 20170615, end: 20170715
  19. LOVENOX [Concomitant]
     Active Substance: ENOXAPARIN SODIUM
     Indication: Product used for unknown indication
     Dosage: UNK, 40.00 MG (MILLIGRAM) INJECTION SC (SUBCUTANEOUS) QD (EVERY DAY)
     Route: 065
     Dates: start: 20170516, end: 20170704
  20. MUCOBENE [Concomitant]
     Indication: Vomiting
     Dosage: UNK, (ONGOING = NOT CHECKED)
     Route: 065
     Dates: start: 20170517, end: 20170704
  21. Novalgin [Concomitant]
     Indication: Product used for unknown indication
     Dosage: UNK
     Route: 065
     Dates: start: 20170615, end: 20170704
  22. PANTOPRAZOLE SODIUM [Concomitant]
     Active Substance: PANTOPRAZOLE SODIUM
     Indication: Vomiting
     Dosage: ONGOING = NOT CHECKED
     Route: 065
     Dates: start: 20170516, end: 20170517
  23. MEFENAMIC ACID [Concomitant]
     Active Substance: MEFENAMIC ACID
     Indication: Product used for unknown indication
     Dosage: UNK
     Route: 065
     Dates: start: 20170217, end: 20170615
  24. Paspertin [Concomitant]
     Indication: Vomiting
     Dosage: UNK, ONGOING = NOT CHECKED
     Route: 065
     Dates: start: 20170516, end: 20170517
  25. TRAZODONE HYDROCHLORIDE [Concomitant]
     Active Substance: TRAZODONE HYDROCHLORIDE
     Indication: Pleural effusion
     Dosage: UNK, ONGOING = NOT CHECKED
     Route: 065
     Dates: start: 20170615, end: 20170704
  26. UNASYN [Concomitant]
     Active Substance: AMPICILLIN SODIUM\SULBACTAM SODIUM
     Indication: Vomiting
     Dosage: UNK, ONGOING = NOT CHECKED
     Route: 065
     Dates: start: 20170516, end: 20170517
  27. ALPRAZOLAM [Concomitant]
     Active Substance: ALPRAZOLAM
     Indication: Product used for unknown indication
     Route: 065
     Dates: start: 20170615, end: 20170704
  28. ZOFRAN [Concomitant]
     Active Substance: ONDANSETRON HYDROCHLORIDE
     Indication: Product used for unknown indication
     Dosage: UNK, ONGOING = NOT CHECKED
     Route: 065
     Dates: start: 20170517, end: 20170704

REACTIONS (4)
  - Ovarian epithelial cancer [Fatal]
  - Pleural effusion [Recovered/Resolved]
  - Vomiting [Not Recovered/Not Resolved]
  - Cough [Recovered/Resolved]

NARRATIVE: CASE EVENT DATE: 20170410
